FAERS Safety Report 5158627-8 (Version None)
Quarter: 2006Q4

REPORT INFORMATION
  Report Type: 
  Country: None (occurrence: None)
  Receive Date: 20061128
  Receipt Date: 20061116
  Transmission Date: 20070319
  Serious: Yes (Other)
  Sender: FDA-Public Use
  Company Number: US-ELI_LILLY_AND_COMPANY-US200611003442

PATIENT
  Age: 40 Year
  Sex: Male

DRUGS (5)
  1. HUMALOG [Suspect]
     Dosage: UNK, UNKNOWN
     Dates: start: 20060501
  2. HUMULIN N [Suspect]
     Dosage: UNK, UNKNOWN
     Dates: start: 19860101, end: 20060501
  3. HUMULIN R [Suspect]
     Dosage: UNK, UNKNOWN
     Dates: start: 19860101, end: 20060501
  4. ILETIN [Suspect]
     Dosage: UNK, UNKNOWN
     Dates: start: 19760101, end: 19860101
  5. ILETIN [Suspect]
     Dosage: UNK, UNKNOWN
     Dates: start: 19760101, end: 19860101

REACTIONS (3)
  - BLINDNESS [None]
  - DIABETIC RETINOPATHY [None]
  - NEOVASCULARISATION [None]
